FAERS Safety Report 8238122-X (Version None)
Quarter: 2012Q1

REPORT INFORMATION
  Report Type: 
  Country: None (occurrence: None)
  Receive Date: 20120327
  Receipt Date: 20120312
  Transmission Date: 20120608
  Serious: No
  Sender: FDA-Public Use
  Company Number: US-ROCHE-1052078

PATIENT
  Age: 6 Year
  Sex: Female
  Weight: 22.7 kg

DRUGS (1)
  1. TAMIFLU [Suspect]
     Indication: INFLUENZA
     Route: 048
     Dates: start: 20120308

REACTIONS (3)
  - INCORRECT DOSE ADMINISTERED [None]
  - VOMITING [None]
  - PYREXIA [None]
